FAERS Safety Report 5744237-8 (Version None)
Quarter: 2008Q2

REPORT INFORMATION
  Report Type: 
  Country: None (occurrence: None)
  Receive Date: 20080520
  Receipt Date: 20080509
  Transmission Date: 20081010
  Serious: Yes (Other)
  Sender: FDA-Public Use
  Company Number: FR-AVENTIS-200811732FR

PATIENT
  Sex: Male

DRUGS (2)
  1. LOVENOX [Suspect]
     Route: 058
     Dates: start: 20080501, end: 20080501
  2. PLAVIX [Concomitant]

REACTIONS (3)
  - HEPATITIS [None]
  - LIVER INJURY [None]
  - TRANSAMINASES INCREASED [None]
